FAERS Safety Report 25402629 (Version 2)
Quarter: 2025Q2

REPORT INFORMATION
  Report Type: Spontaneous
  Country: EE (occurrence: EE)
  Receive Date: 20250605
  Receipt Date: 20250611
  Transmission Date: 20250716
  Serious: Yes (Other)
  Sender: MYLAN
  Company Number: EE-Orion Corporation ORION PHARMA-PROR2025-0005

PATIENT
  Age: 30 Year
  Sex: Male

DRUGS (12)
  1. PREGABALIN [Interacting]
     Active Substance: PREGABALIN
     Indication: Product used for unknown indication
  2. PREGABALIN [Interacting]
     Active Substance: PREGABALIN
     Route: 065
  3. PREGABALIN [Interacting]
     Active Substance: PREGABALIN
     Route: 065
  4. PREGABALIN [Interacting]
     Active Substance: PREGABALIN
  5. OXYCONTIN [Interacting]
     Active Substance: OXYCODONE HYDROCHLORIDE
     Indication: Product used for unknown indication
  6. OXYCONTIN [Interacting]
     Active Substance: OXYCODONE HYDROCHLORIDE
     Route: 065
  7. OXYCONTIN [Interacting]
     Active Substance: OXYCODONE HYDROCHLORIDE
     Route: 065
  8. OXYCONTIN [Interacting]
     Active Substance: OXYCODONE HYDROCHLORIDE
  9. ZOPICLONE [Suspect]
     Active Substance: ZOPICLONE
     Indication: Product used for unknown indication
  10. ZOPICLONE [Suspect]
     Active Substance: ZOPICLONE
     Route: 065
  11. ZOPICLONE [Suspect]
     Active Substance: ZOPICLONE
     Route: 065
  12. ZOPICLONE [Suspect]
     Active Substance: ZOPICLONE

REACTIONS (6)
  - Intentional self-injury [Unknown]
  - Drug abuse [Unknown]
  - Tongue disorder [Unknown]
  - Speech disorder [Unknown]
  - Gait disturbance [Unknown]
  - Labelled drug-drug interaction issue [Unknown]
